FAERS Safety Report 17765651 (Version 1)
Quarter: 2020Q2

REPORT INFORMATION
  Report Type: Spontaneous
  Country: US (occurrence: US)
  Receive Date: 20200511
  Receipt Date: 20200511
  Transmission Date: 20200714
  Serious: No
  Sender: FDA-Public Use
  Company Number: US-SA-2020SA118767

PATIENT
  Sex: Female

DRUGS (1)
  1. SELSUN BLUE 2-IN-1 [Suspect]
     Active Substance: SELENIUM SULFIDE
     Indication: ROSACEA
     Dosage: UNK; 2 BOTTLES

REACTIONS (1)
  - Therapeutic response decreased [Unknown]
